FAERS Safety Report 8553767 (Version 5)
Quarter: 2012Q4

REPORT INFORMATION
  Report Type: 
  Country: US (occurrence: US)
  Receive Date: 20120509
  Receipt Date: 20121210
  Transmission Date: 20130627
  Serious: Yes (Hospitalization)
  Sender: FDA-Public Use
  Company Number: US-PFIZER INC-2012104082

PATIENT
  Age: 28 Year
  Sex: Female
  Weight: 114.6 kg

DRUGS (2)
  1. DESVENLAFAXINE SUCCINATE MONOHYDRATE [Suspect]
     Indication: MAJOR DEPRESSIVE DISORDER NOS
     Dosage: Once daily
     Route: 048
     Dates: start: 20120417, end: 20120422
  2. IBUPROFEN [Concomitant]
     Indication: BACK PAIN
     Dosage: 600 mg, as needed
     Route: 048
     Dates: start: 2008

REACTIONS (1)
  - Suicidal ideation [Recovered/Resolved]
